FAERS Safety Report 25488969 (Version 4)
Quarter: 2025Q3

REPORT INFORMATION
  Report Type: Spontaneous
  Country: CO (occurrence: CO)
  Receive Date: 20250627
  Receipt Date: 20250825
  Transmission Date: 20251021
  Serious: No
  Sender: PFIZER
  Company Number: CO-PFIZER INC-PV202500076280

PATIENT
  Age: 9 Year
  Sex: Female

DRUGS (1)
  1. GENOTROPIN [Suspect]
     Active Substance: SOMATROPIN
     Dosage: 1 MG, DAILY

REACTIONS (3)
  - Device mechanical issue [Unknown]
  - Device information output issue [Unknown]
  - Drug dose omission by device [Unknown]

NARRATIVE: CASE EVENT DATE: 20250101
